FAERS Safety Report 11227642 (Version 1)
Quarter: 2015Q2

REPORT INFORMATION
  Report Type: Spontaneous
  Country: US (occurrence: None)
  Receive Date: 20150626
  Receipt Date: 20150626
  Transmission Date: 20150821
  Serious: Yes (Hospitalization, Other)
  Sender: FDA-Public Use
  Company Number: None

PATIENT
  Age: 35 Year
  Sex: Female
  Weight: 68.04 kg

DRUGS (5)
  1. OXYCONTIN [Suspect]
     Active Substance: OXYCODONE HYDROCHLORIDE
     Indication: PAIN MANAGEMENT
     Route: 048
     Dates: start: 20150526, end: 20150625
  2. MIRALAX LAXATIVE [Concomitant]
  3. XANAX [Concomitant]
     Active Substance: ALPRAZOLAM
  4. OXYCONTIN [Concomitant]
     Active Substance: OXYCODONE HYDROCHLORIDE
  5. SOMA [Concomitant]
     Active Substance: CARISOPRODOL

REACTIONS (8)
  - Nausea [None]
  - Vomiting [None]
  - Constipation [None]
  - Medication residue present [None]
  - Product quality issue [None]
  - Headache [None]
  - Abdominal pain upper [None]
  - Product formulation issue [None]

NARRATIVE: CASE EVENT DATE: 20150625
